FAERS Safety Report 5224681-8 (Version None)
Quarter: 2007Q1

REPORT INFORMATION
  Report Type: 
  Country: None (occurrence: None)
  Receive Date: 20070129
  Receipt Date: 20070129
  Transmission Date: 20070707
  Serious: Yes (Other)
  Sender: FDA-Public Use
  Company Number: None

PATIENT
  Sex: Male

DRUGS (1)
  1. DEEP SEA NASAL SPRAY [Suspect]
     Indication: DRUG THERAPY

REACTIONS (3)
  - BURNING SENSATION [None]
  - SINUS DISORDER [None]
  - SINUS HEADACHE [None]
